FAERS Safety Report 6510494-3 (Version None)
Quarter: 2009Q4

REPORT INFORMATION
  Report Type: 
  Country: None (occurrence: None)
  Receive Date: 20091222
  Receipt Date: 20091214
  Transmission Date: 20100525
  Serious: Yes (Other)
  Sender: FDA-Public Use
  Company Number: US-AMGEN-QUU379913

PATIENT
  Sex: Female

DRUGS (8)
  1. ENBREL [Suspect]
     Indication: RHEUMATOID ARTHRITIS
  2. TYLENOL (CAPLET) [Concomitant]
  3. PREDNISONE [Concomitant]
  4. METHOTREXATE [Concomitant]
  5. BONIVA [Concomitant]
  6. FISH OIL [Concomitant]
  7. VOLTAREN [Concomitant]
  8. VITAMIN D [Concomitant]

REACTIONS (5)
  - CARDIAC FAILURE [None]
  - DIASTOLIC DYSFUNCTION [None]
  - PALPITATIONS [None]
  - PULMONARY HYPERTENSION [None]
  - SUPRAVENTRICULAR TACHYCARDIA [None]
